FAERS Safety Report 8192533-X (Version None)
Quarter: 2012Q1

REPORT INFORMATION
  Report Type: 
  Country: None (occurrence: None)
  Receive Date: 20120308
  Receipt Date: 20120229
  Transmission Date: 20120608
  Serious: Yes (Hospitalization, Other)
  Sender: FDA-Public Use
  Company Number: US-BIOGENIDEC-2012BI005422

PATIENT
  Age: 62 Year
  Sex: Male

DRUGS (4)
  1. AVONEX [Suspect]
     Route: 030
     Dates: start: 20100409
  2. AVONEX [Suspect]
     Route: 030
     Dates: start: 20030101, end: 20091228
  3. KLONOPIN [Concomitant]
  4. AVONEX [Suspect]
     Indication: MULTIPLE SCLEROSIS
     Route: 030
     Dates: start: 19970101, end: 20030101

REACTIONS (5)
  - MULTIPLE SCLEROSIS RELAPSE [None]
  - HYPOTENSION [None]
  - POLLAKIURIA [None]
  - TONIC CONVULSION [None]
  - UNDERDOSE [None]
